FAERS Safety Report 8318735-7 (Version None)
Quarter: 2012Q2

REPORT INFORMATION
  Report Type: 
  Country: None (occurrence: None)
  Receive Date: 20120427
  Receipt Date: 20120425
  Transmission Date: 20120825
  Serious: Yes (Other)
  Sender: FDA-Public Use
  Company Number: JP-PFIZER INC-2012026916

PATIENT
  Age: 36 Year
  Sex: Female

DRUGS (3)
  1. VOGLIBOSE [Suspect]
     Indication: SUICIDE ATTEMPT
     Dosage: 26.1 G
     Route: 048
  2. ZOLPIDEM [Suspect]
     Dosage: 500 MG
  3. NORVASC [Suspect]
     Indication: SUICIDE ATTEMPT
     Dosage: 420 MG
     Route: 048

REACTIONS (3)
  - RENAL FAILURE ACUTE [None]
  - OVERDOSE [None]
  - SUICIDE ATTEMPT [None]
